FAERS Safety Report 16701403 (Version 3)
Quarter: 2020Q3

REPORT INFORMATION
  Report Type: Spontaneous
  Country: DE (occurrence: DE)
  Receive Date: 20190814
  Receipt Date: 20200930
  Transmission Date: 20201102
  Serious: Yes (Other)
  Sender: FDA-Public Use
  Company Number: DE-GLENMARK PHARMACEUTICALS-2019GMK042574

PATIENT

DRUGS (6)
  1. LERCANIDIPINE [Concomitant]
     Active Substance: LERCANIDIPINE
     Indication: HYPERTENSION
     Dosage: 10 MG, QD; WITH WATER
     Route: 048
  2. NEBIVOLOL GLENMARK 2.5 MG TABLETTEN [Suspect]
     Active Substance: NEBIVOLOL
     Dosage: 2.5 MG, QD; START DATE: 2 MONTHS AGO
     Route: 048
  3. ASPIRIN                            /00002701/ [Concomitant]
     Active Substance: ASPIRIN
     Indication: ANTICOAGULANT THERAPY
     Dosage: 100 MG, QD; WITH WATER
     Route: 048
  4. NEBIVOLOL GLENMARK 2.5 MG TABLETTEN [Suspect]
     Active Substance: NEBIVOLOL
     Indication: HYPERTENSION
     Dosage: 2.5 MG, QD; START DATE: 8 YEARS AGO?EXACT DATE UNKNOWN (SHORTLY DOSE INCREASED TO 5 MG)
     Route: 048
  5. NEBIVOLOL GLENMARK 5MG TABLETTEN [Suspect]
     Active Substance: NEBIVOLOL
     Indication: HYPERTENSION
     Dosage: 5 MG, QD; START DATE: 8 YEARS AGO?EXACT DATE UNKNOWN
     Route: 048
  6. LERCANIDIPINE [Concomitant]
     Active Substance: LERCANIDIPINE
     Dosage: 10 MG, BID (MORNING AND EVENING WITH WATER)
     Route: 048

REACTIONS (2)
  - Diplopia [Recovering/Resolving]
  - Visual impairment [Recovering/Resolving]
